FAERS Safety Report 6618056-4 (Version None)
Quarter: 2010Q1

REPORT INFORMATION
  Report Type: 
  Country: None (occurrence: None)
  Receive Date: 20100308
  Receipt Date: 20100225
  Transmission Date: 20100710
  Serious: Yes (Hospitalization, Disabling)
  Sender: FDA-Public Use
  Company Number: US-ROCHE-666954

PATIENT
  Age: 67 Year
  Sex: Male
  Weight: 78.9 kg

DRUGS (43)
  1. BEVACIZUMAB [Suspect]
     Indication: GASTRIC CANCER
     Dosage: 1100 MG, Q3W
     Route: 042
     Dates: start: 20080917
  2. CAPECITABINE [Suspect]
     Indication: GASTRIC CANCER
     Dosage: 1000 MG, BID DAYS 1-14
     Route: 065
     Dates: start: 20080917
  3. COUMADIN [Concomitant]
     Dosage: COMMENTS: THROMBUS
     Dates: start: 20081023, end: 20091031
  4. CARAFATE [Concomitant]
     Indication: ULCER
     Dosage: 1 G, UNK,  FREQUENCY: Q.I.D.  COMMENTS: ULCER
     Route: 048
     Dates: start: 20091102
  5. NORVASC [Concomitant]
     Indication: DRUG USE FOR UNKNOWN INDICATION
     Dosage: 10 MG, QD
     Route: 048
     Dates: start: 20091111
  6. KYTRIL [Concomitant]
     Indication: NAUSEA
     Dosage: FREQUENCY: ONCE
     Route: 048
     Dates: start: 20080924, end: 20080924
  7. LOMOTIL [Concomitant]
     Dosage: DOSE REPORTED: 1 P.O.
     Route: 048
     Dates: start: 20080925, end: 20090930
  8. FERROUS SULFATE TAB [Concomitant]
     Dosage: 27 MG, QDX2
     Route: 048
     Dates: start: 20080301
  9. PROTONIX [Concomitant]
     Dosage: FREQUENCY: DAILY
     Route: 048
     Dates: start: 20081008
  10. UROXATRAL [Concomitant]
     Dosage: 10 MG, QD
     Route: 048
     Dates: start: 20030101
  11. ISOSORBIDE DINITRATE [Concomitant]
     Dosage: 5 MG, UNK
     Route: 048
  12. PROCHLORPERAZINE [Concomitant]
     Indication: DRUG USE FOR UNKNOWN INDICATION
     Dosage: 10 MG, PRN
     Route: 048
  13. LYRICA [Concomitant]
     Dates: start: 20080708
  14. LIPITOR [Concomitant]
     Indication: PROPHYLAXIS
  15. ASPIRIN [Concomitant]
     Indication: PROPHYLAXIS
     Dosage: 81 MG, QD
     Dates: start: 19960101
  16. VITAMIN E [Concomitant]
     Indication: VITAMIN SUPPLEMENTATION
     Dosage: 1000 IU, QD
     Dates: start: 20080301
  17. VITAMIN C [Concomitant]
     Indication: VITAMIN SUPPLEMENTATION
     Dosage: 1000 MG, QD
     Dates: start: 20080301
  18. VITAMINE D [Concomitant]
     Indication: VITAMIN SUPPLEMENTATION
     Dosage: 1000 IU, QD
     Dates: start: 20080301
  19. VITAMIN B-12 [Concomitant]
     Indication: VITAMIN SUPPLEMENTATION
     Dosage: 250 UG, QD
     Dates: start: 20080301
  20. ALKA-SELTZER [Concomitant]
     Dosage: 2 TABLET, PRN
     Dates: start: 20080201
  21. COMPAZINE [Concomitant]
     Indication: NAUSEA
     Dosage: 10 MG, PRN
     Dates: start: 20080917
  22. DIAZEPAM [Concomitant]
     Indication: ANXIETY
     Dosage: 5 MG, UNK
     Dates: start: 20081008
  23. CIPROFLOXACIN [Concomitant]
     Indication: GASTROENTERITIS
     Dosage: 500 MG, BID
     Dates: start: 20081007, end: 20081016
  24. CIPROFLOXACIN [Concomitant]
     Dosage: 500 MG, BID
     Dates: start: 20081007, end: 20081016
  25. PERCOCET [Concomitant]
     Indication: PAIN
     Dosage: FREQUENCY: PRN
     Dates: start: 20081119
  26. IRON [Concomitant]
     Dosage: FREQUENCY: QD
     Dates: start: 20080301
  27. MILK OF MAGNESIA TAB [Concomitant]
     Indication: CONSTIPATION
     Dates: start: 20080301, end: 20080925
  28. MAGIC MOUTHWASH NOS [Concomitant]
     Dosage: DOSE : 2 TB SP.  FREQUENCY: PRN
     Dates: start: 20080924, end: 20090708
  29. VICODIN [Concomitant]
     Indication: PAIN
     Dates: start: 20081015, end: 20090808
  30. LOVENOX [Concomitant]
     Indication: THROMBOSIS
     Dosage: FREQUENCY: DAILY
     Dates: start: 20081023, end: 20081027
  31. VITAMIN K TAB [Concomitant]
     Indication: COAGULOPATHY
     Dosage: FREQUENCY: QD
     Dates: start: 20081105, end: 20081105
  32. IMODIUM [Concomitant]
     Dosage: DOSE: 1 TABLET
     Dates: start: 20080919, end: 20090930
  33. MEGACE [Concomitant]
  34. NEURONTIN [Concomitant]
     Dosage: FREQUENCY: QD
     Dates: start: 20090419, end: 20090527
  35. NEURONTIN [Concomitant]
     Dosage: FREQUENCY: QD
     Dates: start: 20090527, end: 20090708
  36. NORMAL SALINE [Concomitant]
     Indication: GASTROINTESTINAL DISORDER
     Dosage: FREQUENCY: ONCE
     Dates: start: 20080906, end: 20080926
  37. EMEND [Concomitant]
     Dosage: FREQUENCY: QD
     Dates: start: 20081022, end: 20081024
  38. LAC-HYDRIN [Concomitant]
     Dosage: LOTION.  FREQUENCY: BID
     Dates: start: 20090318
  39. EMLA [Concomitant]
     Dosage: 2.5% CREAM,  FREQUENCY:  10 MINUTES
     Dates: start: 20090318
  40. ARANESP [Concomitant]
     Dosage: FREQUENCY: 2 WEEKS
     Dates: start: 20080917, end: 20090225
  41. NEUPOGEN [Concomitant]
     Dates: start: 20090106, end: 20090225
  42. LOVENOX [Concomitant]
     Dates: start: 20090102, end: 20090114
  43. INFLUENZA VACCINE [Concomitant]
     Indication: PROPHYLAXIS
     Dosage: FREQUENCY: ONCE
     Dates: start: 20091021, end: 20091021

REACTIONS (8)
  - DUODENAL ULCER [None]
  - DUODENAL ULCER HAEMORRHAGE [None]
  - HAEMATEMESIS [None]
  - HAEMOGLOBIN DECREASED [None]
  - INTERNATIONAL NORMALISED RATIO INCREASED [None]
  - NAUSEA [None]
  - VOMITING [None]
  - WEIGHT ABNORMAL [None]
